FAERS Safety Report 12367033 (Version 2)
Quarter: 2016Q2

REPORT INFORMATION
  Report Type: Spontaneous
  Country: GB (occurrence: GB)
  Receive Date: 20160513
  Receipt Date: 20160527
  Transmission Date: 20160815
  Serious: Yes (Disabling, Other)
  Sender: FDA-Public Use
  Company Number: GB-009507513-1605GBR004266

PATIENT
  Sex: Female

DRUGS (1)
  1. IMPLANON [Suspect]
     Active Substance: ETONOGESTREL
     Dosage: UNK
     Route: 059
     Dates: start: 2015

REACTIONS (5)
  - Loss of consciousness [Unknown]
  - Food allergy [Unknown]
  - Hypersensitivity [Unknown]
  - Reaction to drug excipients [Unknown]
  - Adverse event [Unknown]

NARRATIVE: CASE EVENT DATE: 2016
